FAERS Safety Report 6476549-7 (Version None)
Quarter: 2009Q4

REPORT INFORMATION
  Report Type: 
  Country: None (occurrence: None)
  Receive Date: 20091207
  Receipt Date: 20091203
  Transmission Date: 20100525
  Serious: Yes (Death, Hospitalization)
  Sender: FDA-Public Use
  Company Number: US-ELI_LILLY_AND_COMPANY-US200912001184

PATIENT
  Sex: Male

DRUGS (3)
  1. ALIMTA [Suspect]
     Indication: NON-SMALL CELL LUNG CANCER
     Dosage: 500 MG/M2, UNK
     Dates: start: 20091016, end: 20091103
  2. VITAMIN B-12 [Concomitant]
     Dosage: 500 UG, UNK
     Route: 048
     Dates: start: 20091030
  3. FOLIC ACID [Concomitant]
     Dosage: 1 MG, UNK

REACTIONS (3)
  - DEATH [None]
  - DEHYDRATION [None]
  - DYSPHAGIA [None]
